FAERS Safety Report 5507187-8 (Version None)
Quarter: 2007Q4

REPORT INFORMATION
  Report Type: 
  Country: None (occurrence: None)
  Receive Date: 20071105
  Receipt Date: 20071019
  Transmission Date: 20080405
  Serious: Yes (Other)
  Sender: FDA-Public Use
  Company Number: 200712313

PATIENT
  Sex: Male

DRUGS (3)
  1. ALBUMINAR-25 [Suspect]
     Indication: NEPHROTIC SYNDROME
     Dosage: IV
     Route: 042
  2. LASIX [Concomitant]
  3. PREDNISONE TAB [Concomitant]

REACTIONS (2)
  - BACTERIAL INFECTION [None]
  - DRUG HYPERSENSITIVITY [None]
